FAERS Safety Report 7875762-1 (Version None)
Quarter: 2011Q4

REPORT INFORMATION
  Report Type: 
  Country: None (occurrence: None)
  Receive Date: 20111031
  Receipt Date: 20111025
  Transmission Date: 20120403
  Serious: Yes (Other)
  Sender: FDA-Public Use
  Company Number: RU-BAYER-2011-103880

PATIENT
  Age: 22 Year
  Sex: Female

DRUGS (1)
  1. ESTRADIOL VALERATE/DIENOGEST [Suspect]
     Indication: CONTRACEPTION
     Dosage: 1 DF, QD
     Route: 048
     Dates: start: 20110801

REACTIONS (6)
  - CEREBROVASCULAR ACCIDENT [None]
  - ABDOMINAL TENDERNESS [None]
  - OVARIAN CYST RUPTURED [None]
  - OVARIAN CYST [None]
  - ABDOMINAL PAIN LOWER [None]
  - OVULATION INDUCTION [None]
